FAERS Safety Report 15396319 (Version 2)
Quarter: 2018Q3

REPORT INFORMATION
  Report Type: Spontaneous
  Country: US (occurrence: US)
  Receive Date: 20180918
  Receipt Date: 20180928
  Transmission Date: 20181010
  Serious: Yes (Hospitalization)
  Sender: FDA-Public Use
  Company Number: US-NEUROCRINE BIOSCIENCES INC.-2018NBI02759

PATIENT
  Age: 75 Year
  Sex: Female

DRUGS (24)
  1. ASPIRIN. [Concomitant]
     Active Substance: ASPIRIN
     Dosage: DAILY
  2. LANSOPRAZOLE. [Concomitant]
     Active Substance: LANSOPRAZOLE
  3. SENNA [Concomitant]
     Active Substance: SENNA LEAF\SENNOSIDES\SENNOSIDES A AND B
     Dosage: 5 ML EVERY 12 HOURS AS NEEDED
  4. BACLOFEN. [Concomitant]
     Active Substance: BACLOFEN
  5. CLONIDINE. [Concomitant]
     Active Substance: CLONIDINE
  6. DULOXETINE. [Concomitant]
     Active Substance: DULOXETINE
     Dosage: DAILY
  7. MELATONIN [Concomitant]
     Active Substance: MELATONIN
     Dosage: AT BEDTIME
  8. LEVOTHYROXINE. [Concomitant]
     Active Substance: LEVOTHYROXINE
  9. MICONAZOLE. [Concomitant]
     Active Substance: MICONAZOLE
     Dosage: APPLIED EVERY 6 HOURS
  10. VITAMIN D [Concomitant]
     Active Substance: CHOLECALCIFEROL
  11. HYDROXYZINE [Concomitant]
     Active Substance: HYDROXYZINE HYDROCHLORIDE
  12. METHADONE [Concomitant]
     Active Substance: METHADONE HYDROCHLORIDE
  13. SIMETHICONE (DIMETHICONE) [Concomitant]
     Active Substance: DIMETHICONE
     Dosage: 80 MG 3 TIMES A DAY AS NEEDED
  14. TYLENOL [Concomitant]
     Active Substance: ACETAMINOPHEN
     Dosage: EVERY 4 HOURS AS NEEDED
  15. GABAPENTIN. [Concomitant]
     Active Substance: GABAPENTIN
  16. HYDRALAZINE [Concomitant]
     Active Substance: HYDRALAZINE HYDROCHLORIDE
     Indication: HYPERTENSION
     Dosage: 20 MG AS NEEDED EVERY 4 HOURS
  17. LACOSAMIDE. [Concomitant]
     Active Substance: LACOSAMIDE
  18. OLANZAPINE. [Concomitant]
     Active Substance: OLANZAPINE
     Dosage: AT BEDTIME
  19. VALPROIC ACID. [Concomitant]
     Active Substance: VALPROIC ACID
  20. VERAPAMIL [Concomitant]
     Active Substance: VERAPAMIL HYDROCHLORIDE
  21. INGREZZA [Suspect]
     Active Substance: VALBENAZINE
     Indication: TARDIVE DYSKINESIA
     Dates: end: 20180901
  22. ENOXAPARIN [Concomitant]
     Active Substance: ENOXAPARIN
     Dosage: DAILY
  23. MIRALAX [Concomitant]
     Active Substance: POLYETHYLENE GLYCOL 3350
     Dosage: EVERY 48 HOURS AS NEEDED
  24. OXYCODONE [Concomitant]
     Active Substance: OXYCODONE
     Dosage: 5?10 MG EVERY 4 HOURS AS NEEDED

REACTIONS (1)
  - Haemorrhage intracranial [Unknown]

NARRATIVE: CASE EVENT DATE: 20180823
